FAERS Safety Report 16665656 (Version 1)
Quarter: 2019Q3

REPORT INFORMATION
  Report Type: Spontaneous
  Country: US (occurrence: US)
  Receive Date: 20190804
  Receipt Date: 20190804
  Transmission Date: 20191004
  Serious: No
  Sender: FDA-Public Use
  Company Number: US-ABBVIE-19S-163-2730827-00

PATIENT
  Age: 35 Year
  Sex: Female
  Weight: 63.5 kg

DRUGS (6)
  1. DEPAKOTE [Suspect]
     Active Substance: DIVALPROEX SODIUM
     Indication: NERVOUS SYSTEM DISORDER
     Route: 048
  2. PERCOCET [Suspect]
     Active Substance: ACETAMINOPHEN\OXYCODONE HYDROCHLORIDE
     Indication: NERVOUS SYSTEM DISORDER
     Route: 065
  3. LYRICA [Suspect]
     Active Substance: PREGABALIN
     Indication: FIBROMYALGIA
     Route: 065
     Dates: start: 201812
  4. TRAMADOL. [Suspect]
     Active Substance: TRAMADOL
     Indication: NERVOUS SYSTEM DISORDER
     Route: 065
  5. NEURONTIN [Suspect]
     Active Substance: GABAPENTIN
     Indication: NERVOUS SYSTEM DISORDER
     Route: 065
  6. NORCO [Suspect]
     Active Substance: ACETAMINOPHEN\HYDROCODONE BITARTRATE
     Indication: NERVOUS SYSTEM DISORDER
     Route: 065

REACTIONS (5)
  - Product availability issue [Unknown]
  - Drug ineffective [Unknown]
  - Nervous system disorder [Unknown]
  - Fibromyalgia [Unknown]
  - Walking aid user [Unknown]

NARRATIVE: CASE EVENT DATE: 201903
